FAERS Safety Report 17220572 (Version 1)
Quarter: 2019Q4

REPORT INFORMATION
  Report Type: Spontaneous
  Country: ES (occurrence: ES)
  Receive Date: 20191231
  Receipt Date: 20191231
  Transmission Date: 20200122
  Serious: Yes (Hospitalization)
  Sender: FDA-Public Use
  Company Number: ES-MYLANLABS-2019M1132133

PATIENT
  Age: 72 Year
  Sex: Male

DRUGS (7)
  1. METOCLOPRAMIDA                     /00041901/ [Concomitant]
     Active Substance: METOCLOPRAMIDE
     Indication: VOMITING
     Dosage: DOSIS UNIDAD FRECUENCIA: 30 MG-MILIGRAMOS.DOSIS POR TOMA: 10 MG-MILIGRAMOS.
     Route: 042
     Dates: start: 20091008
  2. PANTOPRAZOLE [Suspect]
     Active Substance: PANTOPRAZOLE
     Indication: PROPHYLAXIS
     Dosage: DOSIS UNIDAD FRECUENCIA: 40 MG-MILIGRAMOS.DOSIS POR TOMA: 40 MG-MILIGRAMOS.
     Route: 042
     Dates: start: 20091003, end: 20091022
  3. FENTANILO                          /00174601/ [Concomitant]
     Active Substance: FENTANYL
     Indication: ANALGESIC THERAPY
     Dosage: UNK
     Route: 042
     Dates: start: 20091006, end: 20091012
  4. FENITOINA                          /00017401/ [Suspect]
     Active Substance: PHENYTOIN
     Indication: PROPHYLAXIS
     Dosage: DOSIS UNIDAD FRECUENCIA: 450 MG-MILIGRAMOS. DOSIS POR TOMA: 150 MG-MILIGRAMOS.
     Route: 042
     Dates: start: 20091005, end: 20091017
  5. CEFOTAXIME [Suspect]
     Active Substance: CEFOTAXIME SODIUM
     Indication: PNEUMONIA
     Dosage: DOSIS UNIDAD FRECUENCIA: 3 G-GRAMOS. DOSIS POR TOMA: 1 G-GRAMOS. N? TOMAS POR UNIDAD
     Route: 042
     Dates: start: 20091003, end: 20091008
  6. MIDAZOLAM [Concomitant]
     Active Substance: MIDAZOLAM HYDROCHLORIDE
     Indication: SEDATION
     Dosage: UNK
     Route: 042
     Dates: start: 20091003, end: 20091006
  7. PROPOFOL. [Suspect]
     Active Substance: PROPOFOL
     Indication: SEDATION
     Dosage: 10 MILLILITER, QH
     Route: 042
     Dates: start: 20091003, end: 20091008

REACTIONS (1)
  - Hepatitis [Recovered/Resolved]

NARRATIVE: CASE EVENT DATE: 20091009
